FAERS Safety Report 12976469 (Version 1)
Quarter: 2016Q4

REPORT INFORMATION
  Report Type: Spontaneous
  Country: US (occurrence: US)
  Receive Date: 20161127
  Receipt Date: 20161127
  Transmission Date: 20170207
  Serious: No
  Sender: FDA-Public Use
  Company Number: US-CELGENEUS-USA-2016114239

PATIENT
  Age: 63 Year
  Sex: Male
  Weight: 101.7 kg

DRUGS (5)
  1. REVLIMID [Suspect]
     Active Substance: LENALIDOMIDE
     Dosage: ONCE A DAY
     Route: 048
     Dates: start: 201611
  2. REVLIMID [Suspect]
     Active Substance: LENALIDOMIDE
     Indication: PLASMA CELL MYELOMA
     Dosage: ONCE A DAY
     Route: 048
     Dates: start: 201301
  3. REVLIMID [Suspect]
     Active Substance: LENALIDOMIDE
     Dosage: ONCE A DAY
     Route: 048
     Dates: start: 201405
  4. REVLIMID [Suspect]
     Active Substance: LENALIDOMIDE
     Dosage: ONCE A DAY
     Route: 048
     Dates: start: 20160622, end: 20160712
  5. REVLIMID [Suspect]
     Active Substance: LENALIDOMIDE
     Dosage: ONCE A DAY
     Route: 048
     Dates: start: 201409

REACTIONS (1)
  - Adverse drug reaction [Recovered/Resolved]

NARRATIVE: CASE EVENT DATE: 20160622
